FAERS Safety Report 8496777-9 (Version None)
Quarter: 2012Q3

REPORT INFORMATION
  Report Type: 
  Country: None (occurrence: None)
  Receive Date: 20120709
  Receipt Date: 20120626
  Transmission Date: 20120928
  Serious: Yes (Other)
  Sender: FDA-Public Use
  Company Number: NZ-MYLANLABS-2012S1012979

PATIENT
  Sex: Female

DRUGS (8)
  1. BUSPIRONE HCL [Interacting]
     Indication: PRODUCT USED FOR UNKNOWN INDICATION
  2. PAROXETINE [Suspect]
  3. CLONAZEPAM [Interacting]
     Indication: PRODUCT USED FOR UNKNOWN INDICATION
  4. HALOPERIDOL [Interacting]
     Indication: PRODUCT USED FOR UNKNOWN INDICATION
  5. VALPROATE SODIUM [Interacting]
     Indication: PRODUCT USED FOR UNKNOWN INDICATION
  6. PAROXETINE [Suspect]
  7. PAROXETINE [Suspect]
     Indication: PRODUCT USED FOR UNKNOWN INDICATION
  8. PAROXETINE [Suspect]

REACTIONS (10)
  - OVERDOSE [None]
  - THERAPY CESSATION [None]
  - SEROTONIN SYNDROME [None]
  - IRRITABILITY [None]
  - DRUG INTERACTION [None]
  - AGGRESSION [None]
  - CONFUSIONAL STATE [None]
  - AGITATION [None]
  - NIGHTMARE [None]
  - TACHYPHRENIA [None]
